FAERS Safety Report 18595355 (Version 1)
Quarter: 2020Q4

REPORT INFORMATION
  Report Type: Spontaneous
  Country: FR (occurrence: FR)
  Receive Date: 20201209
  Receipt Date: 20201209
  Transmission Date: 20210114
  Serious: Yes (Hospitalization, Other)
  Sender: FDA-Public Use
  Company Number: FR-TEVA-2020-FR-1855679

PATIENT
  Age: 69 Year
  Sex: Female

DRUGS (11)
  1. COVERSYL 5 MG, COMPRIME PELLICULE SECABLE [Concomitant]
     Active Substance: PERINDOPRIL ARGININE
     Route: 048
  2. VERAPAMIL (CHLORHYDRATE DE) [Concomitant]
     Active Substance: VERAPAMIL HYDROCHLORIDE
     Route: 048
  3. XARELTO [Concomitant]
     Active Substance: RIVAROXABAN
     Route: 048
  4. NEURONTIN [Concomitant]
     Active Substance: GABAPENTIN
     Route: 048
  5. PARACETAMOL [Concomitant]
     Active Substance: ACETAMINOPHEN
     Route: 048
  6. AMIODARONE (CHLORHYDRATE D) [Concomitant]
     Active Substance: AMIODARONE HYDROCHLORIDE
     Route: 048
  7. DIFRAREL [Concomitant]
     Route: 048
  8. FORLAX [Concomitant]
     Active Substance: POLYETHYLENE GLYCOL 4000
     Route: 048
  9. NOVOMIX [Concomitant]
     Active Substance: INSULIN ASPART
     Route: 058
  10. NOVONORM 0,5 MG, COMPRIME [Concomitant]
     Active Substance: REPAGLINIDE
     Route: 048
  11. SIMVASTATINE [Suspect]
     Active Substance: SIMVASTATIN
     Indication: HYPERCHOLESTEROLAEMIA
     Route: 048
     Dates: end: 20201021

REACTIONS (2)
  - Rhabdomyolysis [Unknown]
  - Hepatocellular injury [Recovering/Resolving]

NARRATIVE: CASE EVENT DATE: 20201015
